FAERS Safety Report 9204678 (Version 1)
Quarter: 2013Q2

REPORT INFORMATION
  Report Type: Spontaneous
  Country: US (occurrence: None)
  Receive Date: 20130401
  Receipt Date: 20130401
  Transmission Date: 20140414
  Serious: Yes (Death, Other)
  Sender: FDA-Public Use
  Company Number: None

PATIENT
  Age: 92 Year
  Sex: Female
  Weight: 58.97 kg

DRUGS (1)
  1. QUETIAPINE [Suspect]
     Indication: SOMNOLENCE
     Dosage: 4 TABLETS AT BEDTIME 1X-REPEAT- 1TABLET BUCCAL
     Dates: start: 20121029, end: 20121113

REACTIONS (4)
  - Drug ineffective [None]
  - Decreased appetite [None]
  - General physical health deterioration [None]
  - Respiratory arrest [None]
